FAERS Safety Report 20069612 (Version 1)
Quarter: 2021Q4

REPORT INFORMATION
  Report Type: Spontaneous
  Country: US (occurrence: None)
  Receive Date: 20211112
  Receipt Date: 20211112
  Transmission Date: 20220303
  Serious: No
  Sender: FDA-Public Use
  Company Number: None

PATIENT
  Sex: Female

DRUGS (1)
  1. HUMIRA [Suspect]
     Active Substance: ADALIMUMAB
     Dosage: OTHER FREQUENCY : EVERY14DAYS ;?
     Route: 058
     Dates: start: 20200207

REACTIONS (3)
  - Joint swelling [None]
  - Arthralgia [None]
  - Road traffic accident [None]
